FAERS Safety Report 7300727-8 (Version None)
Quarter: 2011Q1

REPORT INFORMATION
  Report Type: 
  Country: None (occurrence: None)
  Receive Date: 20110105
  Receipt Date: 20091230
  Transmission Date: 20110831
  Serious: Yes (Hospitalization)
  Sender: FDA-Public Use
  Company Number: 296631

PATIENT
  Age: 18 Year
  Sex: Female

DRUGS (1)
  1. GRTPA (ALTEPLASE) POWDER FOR SOLVENT FOR SOLUTION FOR INFUSION [Suspect]
     Indication: CEREBRAL INFARCTION
     Dates: start: 20091215, end: 20091215

REACTIONS (1)
  - HAEMORRHAGE INTRACRANIAL [None]
